FAERS Safety Report 20824433 (Version 1)
Quarter: 2022Q2

REPORT INFORMATION
  Report Type: Spontaneous
  Country: US (occurrence: US)
  Receive Date: 20220513
  Receipt Date: 20220513
  Transmission Date: 20220720
  Serious: No
  Sender: FDA-Public Use
  Company Number: US-APOTEX-2021AP046623

PATIENT
  Age: 25 Year
  Sex: Male

DRUGS (7)
  1. ARIPIPRAZOLE [Suspect]
     Active Substance: ARIPIPRAZOLE
     Indication: Aggression
     Dosage: UNK
     Route: 065
     Dates: start: 202101
  2. OLANZAPINE [Suspect]
     Active Substance: OLANZAPINE
     Indication: Aggression
     Dosage: 5 MILLIGRAM, Q.H.S.
     Route: 065
     Dates: start: 2020, end: 202101
  3. OLANZAPINE [Suspect]
     Active Substance: OLANZAPINE
     Indication: Generalised anxiety disorder
  4. CLONAZEPAM [Suspect]
     Active Substance: CLONAZEPAM
     Indication: Aggression
     Dosage: 0.25 MILLIGRAM, QD
     Route: 065
     Dates: start: 2020
  5. CLONAZEPAM [Suspect]
     Active Substance: CLONAZEPAM
     Indication: Generalised anxiety disorder
  6. VALPROIC ACID [Concomitant]
     Active Substance: VALPROIC ACID
     Indication: Aggression
     Dosage: UNK
     Route: 065
     Dates: start: 2020, end: 202101
  7. VALPROIC ACID [Concomitant]
     Active Substance: VALPROIC ACID
     Indication: Intermittent explosive disorder

REACTIONS (2)
  - Parotid gland enlargement [Recovering/Resolving]
  - Nausea [Unknown]

NARRATIVE: CASE EVENT DATE: 20201001
